FAERS Safety Report 13026271 (Version 2)
Quarter: 2016Q4

REPORT INFORMATION
  Report Type: Spontaneous
  Country: US (occurrence: US)
  Receive Date: 20161214
  Receipt Date: 20161226
  Transmission Date: 20170207
  Serious: No
  Sender: FDA-Public Use
  Company Number: US-ASTRAZENECA-2016SF23348

PATIENT
  Sex: Male
  Weight: 82.6 kg

DRUGS (8)
  1. OMEPRAZOLE. [Suspect]
     Active Substance: OMEPRAZOLE
     Indication: GASTRIC ULCER
     Route: 048
     Dates: start: 2015
  2. TAGAMET [Concomitant]
     Active Substance: CIMETIDINE
     Dosage: UNKNOWN
     Route: 065
  3. OMEPRAZOLE. [Suspect]
     Active Substance: OMEPRAZOLE
     Indication: DIVERTICULITIS
     Route: 048
     Dates: start: 201610
  4. OMEPRAZOLE. [Suspect]
     Active Substance: OMEPRAZOLE
     Indication: HAEMORRHAGE
     Route: 048
     Dates: start: 201610
  5. OMEPRAZOLE. [Suspect]
     Active Substance: OMEPRAZOLE
     Indication: HAEMORRHAGE
     Route: 048
     Dates: start: 2015
  6. OMEPRAZOLE. [Suspect]
     Active Substance: OMEPRAZOLE
     Indication: GASTRIC ULCER
     Route: 048
     Dates: start: 201610
  7. OXYCODONE [Concomitant]
     Active Substance: OXYCODONE
     Indication: BACK PAIN
     Route: 048
  8. OMEPRAZOLE. [Suspect]
     Active Substance: OMEPRAZOLE
     Indication: DIVERTICULITIS
     Route: 048
     Dates: start: 2015

REACTIONS (11)
  - Decreased appetite [Unknown]
  - Weight decreased [Unknown]
  - Back pain [Unknown]
  - Back disorder [Unknown]
  - Diverticulitis [Unknown]
  - Abdominal pain upper [Unknown]
  - Hernia [Unknown]
  - Haematochezia [Unknown]
  - General physical health deterioration [Unknown]
  - Burning sensation [Unknown]
  - Off label use [Unknown]
